FAERS Safety Report 8519290-9 (Version None)
Quarter: 2012Q3

REPORT INFORMATION
  Report Type: 
  Country: None (occurrence: None)
  Receive Date: 20120718
  Receipt Date: 20120709
  Transmission Date: 20120928
  Serious: Yes (Other)
  Sender: FDA-Public Use
  Company Number: US-VERTEX PHARMACEUTICALS INC.-AE-2012-010206

PATIENT
  Sex: Male
  Weight: 74.002 kg

DRUGS (7)
  1. RIBAVIRIN [Concomitant]
     Indication: HEPATITIS C
  2. LISINOPRIL [Concomitant]
  3. PRILOSEC [Concomitant]
  4. INCIVEK [Suspect]
     Indication: HEPATITIS C
     Route: 048
  5. BUPROFEN [Concomitant]
  6. PEGASYS [Concomitant]
     Indication: HEPATITIS C
  7. HYDROCHLOROT [Concomitant]

REACTIONS (8)
  - ANORECTAL DISCOMFORT [None]
  - DIZZINESS [None]
  - ASTHENIA [None]
  - SYNCOPE [None]
  - RASH [None]
  - FEELING HOT [None]
  - PRURITUS [None]
  - HYPERHIDROSIS [None]
